FAERS Safety Report 11285780 (Version 1)
Quarter: 2015Q3

REPORT INFORMATION
  Report Type: Spontaneous
  Country: PT (occurrence: PT)
  Receive Date: 20150721
  Receipt Date: 20150721
  Transmission Date: 20151125
  Serious: Yes (Hospitalization)
  Sender: FDA-Public Use
  Company Number: PHHY2015PT081994

PATIENT
  Age: 79 Year
  Sex: Female

DRUGS (1)
  1. METFORMIN [Suspect]
     Active Substance: METFORMIN HYDROCHLORIDE
     Indication: DIABETES MELLITUS
     Route: 065

REACTIONS (4)
  - Suicide attempt [Unknown]
  - Substance-induced psychotic disorder [Recovered/Resolved]
  - Abnormal behaviour [Recovered/Resolved]
  - Delusion [Recovered/Resolved]
